FAERS Safety Report 16296449 (Version 1)
Quarter: 2019Q2

REPORT INFORMATION
  Report Type: Spontaneous
  Country: US (occurrence: US)
  Receive Date: 20190509
  Receipt Date: 20190509
  Transmission Date: 20190711
  Serious: No
  Sender: FDA-Public Use
  Company Number: None

PATIENT
  Age: 49 Year
  Sex: Female

DRUGS (9)
  1. EMGALITY [Suspect]
     Active Substance: GALCANEZUMAB-GNLM
     Indication: MIGRAINE PROPHYLAXIS
     Dosage: ?          QUANTITY:2 INJECTION(S);?
     Dates: start: 20190410
  2. XANAX [Concomitant]
     Active Substance: ALPRAZOLAM
  3. TRAZADONE 50MG [Concomitant]
  4. CALCIUM [Concomitant]
     Active Substance: CALCIUM
  5. OXYCODONE [Concomitant]
     Active Substance: OXYCODONE
  6. FLEXERIL [Concomitant]
     Active Substance: CYCLOBENZAPRINE HYDROCHLORIDE
  7. VITAMIN D [Concomitant]
     Active Substance: VITAMIN D NOS
  8. PROGESTERON/ESTROGEN [Concomitant]
  9. JUICE PLUS SPPLEMENTS [Concomitant]

REACTIONS (8)
  - Influenza like illness [None]
  - Nausea [None]
  - Migraine [None]
  - Pain [None]
  - Back pain [None]
  - Irritability [None]
  - Fatigue [None]
  - Pain in extremity [None]

NARRATIVE: CASE EVENT DATE: 20190412
